FAERS Safety Report 10174275 (Version 3)
Quarter: 2014Q3

REPORT INFORMATION
  Report Type: Spontaneous
  Country: US (occurrence: US)
  Receive Date: 20140515
  Receipt Date: 20140804
  Transmission Date: 20150326
  Serious: Yes (Other)
  Sender: FDA-Public Use
  Company Number: US-BAYER-2014-071062

PATIENT
  Age: 31 Year
  Sex: Female
  Weight: 66 kg

DRUGS (1)
  1. MIRENA [Suspect]
     Active Substance: LEVONORGESTREL
     Indication: CONTRACEPTION
     Dosage: 20 MCG/24HR, CONT
     Route: 015
     Dates: start: 20110110, end: 20121218

REACTIONS (6)
  - Medical device pain [None]
  - Embedded device [None]
  - Procedural pain [None]
  - Post procedural discomfort [None]
  - Injury [None]
  - Device issue [None]

NARRATIVE: CASE EVENT DATE: 201210
